FAERS Safety Report 4854725-4 (Version None)
Quarter: 2005Q4

REPORT INFORMATION
  Report Type: 
  Country: None (occurrence: None)
  Receive Date: 20051215
  Receipt Date: 20051103
  Transmission Date: 20060501
  Serious: Yes (Other)
  Sender: FDA-Public Use
  Company Number: US-GLAXOSMITHKLINE-A0580847A

PATIENT
  Age: 58 Year
  Sex: Female
  Weight: 70.5 kg

DRUGS (7)
  1. REQUIP [Suspect]
     Indication: RESTLESS LEGS SYNDROME
     Dosage: 1MG AT NIGHT
     Route: 048
     Dates: start: 20050930
  2. DETROL LA [Concomitant]
     Dosage: 4MG PER DAY
  3. LEVOTHYROXINE SODIUM [Concomitant]
     Dosage: 100MG PER DAY
  4. PREVACID [Concomitant]
     Dosage: 30MG PER DAY
  5. CRESTOR [Concomitant]
     Dosage: 10MG PER DAY
  6. SKELAXIN [Concomitant]
     Dosage: 800MG PER DAY
  7. DICLOFENAC [Concomitant]
     Dosage: 50MG PER DAY

REACTIONS (1)
  - INCONTINENCE [None]
